FAERS Safety Report 8138085-1 (Version None)
Quarter: 2012Q1

REPORT INFORMATION
  Report Type: 
  Country: None (occurrence: None)
  Receive Date: 20120103
  Receipt Date: 20110910
  Transmission Date: 20120608
  Serious: No
  Sender: FDA-Public Use
  Company Number: AE-2011-001516

PATIENT
  Age: 51 Year
  Sex: Female
  Weight: 58.0604 kg

DRUGS (6)
  1. CLIMARA [Concomitant]
  2. RIBASPHERE [Concomitant]
  3. PEGASYS [Concomitant]
  4. LEVOXYL [Concomitant]
  5. CARVEDILOL [Concomitant]
  6. INCIVEK [Suspect]
     Dosage: 2250 MG (750 MG, 1 IN 8 HR), ORAL
     Route: 048
     Dates: start: 20110909

REACTIONS (4)
  - INAPPROPRIATE SCHEDULE OF DRUG ADMINISTRATION [None]
  - SENSATION OF FOREIGN BODY [None]
  - PAIN [None]
  - NAUSEA [None]
